FAERS Safety Report 4836115-3 (Version None)
Quarter: 2005Q4

REPORT INFORMATION
  Report Type: 
  Country: None (occurrence: None)
  Receive Date: 20051123
  Receipt Date: 20051004
  Transmission Date: 20060501
  Serious: Yes (Other)
  Sender: FDA-Public Use
  Company Number: US-MERCK-0510USA03335

PATIENT
  Age: 43 Year
  Sex: Female
  Weight: 48 kg

DRUGS (2)
  1. VIOXX [Suspect]
     Indication: TENDONITIS
     Route: 048
  2. VIOXX [Suspect]
     Indication: IMPINGEMENT SYNDROME
     Route: 048

REACTIONS (3)
  - ANXIETY [None]
  - DEPRESSION [None]
  - MYOCARDIAL INFARCTION [None]
